FAERS Safety Report 7065814-0 (Version None)
Quarter: 2010Q4

REPORT INFORMATION
  Report Type: 
  Country: None (occurrence: None)
  Receive Date: 20101027
  Receipt Date: 20101020
  Transmission Date: 20110411
  Serious: Yes (Other)
  Sender: FDA-Public Use
  Company Number: A0874859A

PATIENT
  Age: 76 Year
  Sex: Female

DRUGS (1)
  1. ALLI [Suspect]
     Indication: WEIGHT LOSS DIET
     Route: 048
     Dates: start: 20100101

REACTIONS (3)
  - CONTUSION [None]
  - SKIN ATROPHY [None]
  - VITAMIN D DEFICIENCY [None]
